FAERS Safety Report 6122107-3 (Version None)
Quarter: 2009Q1

REPORT INFORMATION
  Report Type: 
  Country: None (occurrence: None)
  Receive Date: 20090318
  Receipt Date: 20090312
  Transmission Date: 20090719
  Serious: Yes (Death, Other)
  Sender: FDA-Public Use
  Company Number: AU-CELGENEUS-008-20785-09030878

PATIENT

DRUGS (2)
  1. THALOMID [Suspect]
     Indication: MULTIPLE MYELOMA
     Dosage: 100-200MG
     Route: 065
  2. PREDNISOLONE [Suspect]
     Indication: MULTIPLE MYELOMA
     Route: 065

REACTIONS (12)
  - CARDIAC DISORDER [None]
  - CONSTIPATION [None]
  - DEATH [None]
  - DIARRHOEA [None]
  - DYSPEPSIA [None]
  - EYE DISORDER [None]
  - HYPERGLYCAEMIA [None]
  - INFECTION [None]
  - MOOD ALTERED [None]
  - NEUROPATHY PERIPHERAL [None]
  - THROMBOSIS [None]
  - WEIGHT INCREASED [None]
